FAERS Safety Report 5767952-9 (Version None)
Quarter: 2008Q2

REPORT INFORMATION
  Report Type: 
  Country: None (occurrence: None)
  Receive Date: 20080601
  Receipt Date: 20080214
  Transmission Date: 20081010
  Serious: Yes (Hospitalization, Other)
  Sender: FDA-Public Use
  Company Number: US200802002261

PATIENT
  Age: 47 Year
  Sex: Male

DRUGS (6)
  1. BYETTA [Suspect]
     Indication: DIABETES MELLITUS
     Dosage: SUBCUTANEOUS
     Route: 058
     Dates: start: 20070501, end: 20080205
  2. GLUCOPHAGE [Concomitant]
  3. ZETIA [Concomitant]
  4. SYNTHROID [Concomitant]
  5. ALLEGRA [Concomitant]
  6. ASPIRIN [Concomitant]

REACTIONS (3)
  - PYREXIA [None]
  - RASH MACULO-PAPULAR [None]
  - URTICARIA [None]
